FAERS Safety Report 6589513-4 (Version None)
Quarter: 2010Q1

REPORT INFORMATION
  Report Type: 
  Country: None (occurrence: None)
  Receive Date: 20100218
  Receipt Date: 20100212
  Transmission Date: 20100710
  Serious: Yes (Hospitalization)
  Sender: FDA-Public Use
  Company Number: US-GILEAD-2009-0026215

PATIENT
  Sex: Female

DRUGS (17)
  1. LETAIRIS [Suspect]
     Indication: PULMONARY ARTERIAL HYPERTENSION
     Route: 048
     Dates: start: 20090612
  2. ASPIRIN [Concomitant]
  3. LOPRESSOR [Concomitant]
  4. FLORINEF [Concomitant]
  5. DUONEB [Concomitant]
  6. MUCINEX [Concomitant]
  7. HYDROXYZINE [Concomitant]
  8. OYSTER CAL [Concomitant]
  9. BENADRYL [Concomitant]
  10. LORTAB [Concomitant]
  11. MIRALAX [Concomitant]
  12. NEXIUM [Concomitant]
  13. NOVOLOG [Concomitant]
  14. PREDNISONE [Concomitant]
  15. PROZAC [Concomitant]
  16. REQUIP [Concomitant]
  17. ZYLOPRIM [Concomitant]

REACTIONS (1)
  - PULMONARY HAEMORRHAGE [None]
